FAERS Safety Report 18734350 (Version 1)
Quarter: 2021Q1

REPORT INFORMATION
  Report Type: Spontaneous
  Country: US (occurrence: US)
  Receive Date: 20210112
  Receipt Date: 20210112
  Transmission Date: 20210419
  Serious: Yes (Death)
  Sender: FDA-Public Use
  Company Number: None

PATIENT
  Age: 68 Year
  Sex: Male

DRUGS (5)
  1. MULTIVITAMIN TAB MEN 50+ [Concomitant]
     Dates: start: 20170524
  2. ATORVASTAIN TAB 40MG [Concomitant]
     Dates: start: 20200928
  3. PANTOPRAZOLE TAB 40MG [Concomitant]
     Dates: start: 20200622
  4. TACROLIMUS 0.5MG CAPSULE [Suspect]
     Active Substance: TACROLIMUS
     Indication: TRANSPLANT
     Route: 048
     Dates: start: 20180827, end: 20201213
  5. TACROLIMUS 1MG CAPSULE [Suspect]
     Active Substance: TACROLIMUS
     Indication: TRANSPLANT
     Route: 048
     Dates: start: 20180827, end: 20201213

REACTIONS (1)
  - Death [None]

NARRATIVE: CASE EVENT DATE: 20201213
